FAERS Safety Report 21836072 (Version 7)
Quarter: 2025Q2

REPORT INFORMATION
  Report Type: Spontaneous
  Country: US (occurrence: US)
  Receive Date: 20230109
  Receipt Date: 20250502
  Transmission Date: 20250717
  Serious: Yes (Other)
  Sender: TAKEDA
  Company Number: US-TAKEDA-2022TUS081862

PATIENT
  Age: 13 Year
  Sex: Male

DRUGS (10)
  1. ENTYVIO [Suspect]
     Active Substance: VEDOLIZUMAB
     Indication: Crohn^s disease
  2. ENTYVIO [Suspect]
     Active Substance: VEDOLIZUMAB
     Indication: Colitis ulcerative
  3. ENTYVIO [Suspect]
     Active Substance: VEDOLIZUMAB
     Indication: Pruritus
  4. ENTYVIO [Suspect]
     Active Substance: VEDOLIZUMAB
     Indication: Urticaria
  5. ENTYVIO [Suspect]
     Active Substance: VEDOLIZUMAB
     Indication: Multiple congenital abnormalities
  6. ENTYVIO [Suspect]
     Active Substance: VEDOLIZUMAB
  7. ENTYVIO [Suspect]
     Active Substance: VEDOLIZUMAB
  8. MICARDIS [Concomitant]
     Active Substance: TELMISARTAN
  9. FOLIC ACID [Concomitant]
     Active Substance: FOLIC ACID
  10. LOSARTAN POTASSIUM [Concomitant]
     Active Substance: LOSARTAN POTASSIUM

REACTIONS (4)
  - Knee deformity [Unknown]
  - Diarrhoea [Unknown]
  - Fall [Unknown]
  - Abdominal pain [Unknown]

NARRATIVE: CASE EVENT DATE: 20220212
